FAERS Safety Report 5286626-4 (Version None)
Quarter: 2007Q2

REPORT INFORMATION
  Report Type: 
  Country: None (occurrence: None)
  Receive Date: 20070404
  Receipt Date: 20070326
  Transmission Date: 20071010
  Serious: Yes (Death, Life-Threatening)
  Sender: FDA-Public Use
  Company Number: FR-GLAXOSMITHKLINE-B0460532A

PATIENT
  Age: 81 Year
  Sex: Female

DRUGS (2)
  1. ARIXTRA [Suspect]
     Indication: PHLEBITIS
     Dosage: 7.5MG PER DAY
     Route: 058
     Dates: start: 20061212, end: 20061220
  2. XELODA [Suspect]
     Dosage: 2UNIT TWICE PER DAY
     Route: 048
     Dates: start: 20030701

REACTIONS (6)
  - ANURIA [None]
  - GASTRIC ULCER [None]
  - GASTROINTESTINAL HAEMORRHAGE [None]
  - HYPERAESTHESIA [None]
  - INTESTINAL OBSTRUCTION [None]
  - VOMITING [None]
